FAERS Safety Report 8094544-1 (Version None)
Quarter: 2011Q4

REPORT INFORMATION
  Report Type: 
  Country: None (occurrence: None)
  Receive Date: 20111222
  Receipt Date: 20110923
  Transmission Date: 20120403
  Serious: Yes (Death)
  Sender: FDA-Public Use
  Company Number: UTC-010459

PATIENT
  Age: 71 Year
  Sex: Female
  Weight: 60.45 kg

DRUGS (6)
  1. OXYGEN (OXYGEN) [Concomitant]
  2. PLAVIX [Concomitant]
  3. TYVASO [Suspect]
     Indication: COR PULMONALE CHRONIC
     Dosage: 144 MCG  (36 MCG, 4 IN 1 D), INHALATION
     Route: 055
     Dates: start: 20110711
  4. DIURETICS (DIURETICS) [Concomitant]
  5. LETAIRIS [Concomitant]
  6. ASPIRIN [Concomitant]

REACTIONS (2)
  - SCLERODERMA [None]
  - INTERSTITIAL LUNG DISEASE [None]
